FAERS Safety Report 8784815 (Version 6)
Quarter: 2013Q2

REPORT INFORMATION
  Report Type: Spontaneous
  Country: US (occurrence: US)
  Receive Date: 20120914
  Receipt Date: 20130429
  Transmission Date: 20140414
  Serious: Yes (Life-Threatening, Hospitalization)
  Sender: FDA-Public Use
  Company Number: US-B.I. PHARMACEUTICALS,INC./RIDGEFIELD-2012-BP-22645BP

PATIENT
  Age: 52 Year
  Sex: Male
  Weight: 83.46 kg

DRUGS (6)
  1. PRADAXA [Suspect]
     Indication: ATRIAL FIBRILLATION
     Dosage: 300 MG
     Route: 048
     Dates: start: 20111011, end: 20111011
  2. ASPIRIN [Concomitant]
     Dosage: 325 MG
     Route: 048
     Dates: end: 20111011
  3. LIPITOR [Concomitant]
     Dosage: 20 MG
     Route: 048
  4. METOPROLOL [Concomitant]
     Dosage: 50 MG
     Route: 048
  5. LISINOPRIL [Concomitant]
     Dosage: 20 MG
     Route: 048
  6. METFORMIN [Concomitant]
     Dosage: 2000 MG
     Route: 048

REACTIONS (1)
  - Haemorrhage intracranial [Not Recovered/Not Resolved]
